FAERS Safety Report 7411325-X (Version None)
Quarter: 2011Q2

REPORT INFORMATION
  Report Type: 
  Country: None (occurrence: None)
  Receive Date: 20110413
  Receipt Date: 20110404
  Transmission Date: 20111010
  Serious: Yes (Other)
  Sender: FDA-Public Use
  Company Number: US-RB-025240-11

PATIENT
  Sex: Male

DRUGS (3)
  1. SUBOXONE [Suspect]
     Dosage: DOSING INFORMATION UNKNOWN
     Route: 064
     Dates: end: 20100101
  2. SUBUTEX [Suspect]
     Indication: DRUG DEPENDENCE
     Route: 064
     Dates: start: 20100101, end: 20100101
  3. SUBOXONE [Suspect]
     Indication: DRUG DEPENDENCE
     Dosage: 1 - 2 MG DAILY
     Route: 064
     Dates: start: 20100101, end: 20110109

REACTIONS (3)
  - DRUG WITHDRAWAL SYNDROME NEONATAL [None]
  - PREMATURE BABY [None]
  - DRUG EXPOSURE DURING PREGNANCY [None]
